FAERS Safety Report 4810014-5 (Version None)
Quarter: 2005Q4

REPORT INFORMATION
  Report Type: 
  Country: None (occurrence: None)
  Receive Date: 20051024
  Receipt Date: 20051012
  Transmission Date: 20060501
  Serious: Yes (Hospitalization)
  Sender: FDA-Public Use
  Company Number: 032-46

PATIENT
  Age: 78 Year
  Sex: Male

DRUGS (8)
  1. TEVETEN [Suspect]
     Indication: HYPERTENSION
     Dosage: 600 MG QD PO
     Route: 048
     Dates: start: 20040314, end: 20041214
  2. NATRII VALPROAS [Concomitant]
  3. ATORVASTATIN CALCIUM [Concomitant]
  4. SOTALOL [Concomitant]
  5. FUROSEMIDE [Concomitant]
  6. ZOLPIDEM TARTRATE [Concomitant]
  7. ALLOPURINOL [Concomitant]
  8. ESCITALOPRAM OXALATE [Concomitant]

REACTIONS (6)
  - BLOOD PRESSURE FLUCTUATION [None]
  - BLOOD PRESSURE INCREASED [None]
  - GOUTY ARTHRITIS [None]
  - RENAL ARTERY STENOSIS [None]
  - RENAL FAILURE [None]
  - SELF-MEDICATION [None]
